FAERS Safety Report 9718556 (Version 1)
Quarter: 2013Q4

REPORT INFORMATION
  Report Type: Not Available
  Country: US (occurrence: US)
  Receive Date: 20131125
  Receipt Date: 20131125
  Transmission Date: 20140711
  Serious: No
  Sender: FDA-Public Use
  Company Number: US-VIVUS-2013V1000762

PATIENT
  Age: 67 Year
  Sex: Female
  Weight: 84.44 kg

DRUGS (19)
  1. QSYMIA 15MG/92MG [Suspect]
     Indication: OBESITY
     Route: 048
     Dates: start: 20130818
  2. QSYMIA 7.5MG/46MG [Suspect]
     Indication: OBESITY
     Route: 048
     Dates: start: 20130528, end: 20130818
  3. QSYMIA 3.75MG/23MG [Suspect]
     Indication: OBESITY
     Route: 048
  4. TAZTIA XT [Concomitant]
     Indication: PRODUCT USED FOR UNKNOWN INDICATION
     Dosage: 360/24 MG
     Route: 048
  5. COUMADIN [Concomitant]
     Indication: PRODUCT USED FOR UNKNOWN INDICATION
     Dosage: TAKE 1 TABLET DAILY WITH 5MG TABLET FOIR 7 MG TOTAL OR TAKE AS DIRECTED.
     Route: 048
     Dates: start: 1998
  6. COUMADIN [Concomitant]
     Dosage: TAKE 2.5 TABS (10MG) EVERY THUR AND 2 TABLETS (8MG) THE OTHER DAYS OF THE WEEK OR AS DIRECTED
     Route: 048
  7. COUMADIN [Concomitant]
     Route: 048
  8. REQUIP [Concomitant]
     Indication: PRODUCT USED FOR UNKNOWN INDICATION
     Route: 048
     Dates: start: 1998
  9. VAGIFEM [Concomitant]
     Indication: PRODUCT USED FOR UNKNOWN INDICATION
     Dosage: USE 20 MCG DAILY FOR 4-6 WEEKS, THEN EVERY OTHER DAY FOR 2-3 MONTHS AND THEN 2-3 TIMES PER WEEK INDE
     Route: 048
     Dates: start: 2003
  10. ZANTAC [Concomitant]
     Indication: PRODUCT USED FOR UNKNOWN INDICATION
     Route: 048
     Dates: start: 201308
  11. DIOVAN [Concomitant]
     Indication: PRODUCT USED FOR UNKNOWN INDICATION
     Route: 048
     Dates: start: 2003
  12. HCTZ [Concomitant]
     Indication: PRODUCT USED FOR UNKNOWN INDICATION
     Route: 048
     Dates: start: 1998
  13. PRILOSEC [Concomitant]
     Indication: PRODUCT USED FOR UNKNOWN INDICATION
     Route: 048
     Dates: start: 2008
  14. NEURONTIN [Concomitant]
     Indication: PRODUCT USED FOR UNKNOWN INDICATION
     Dosage: ONE TAB EVERY AM, 2 TABS AT BEDTIME
     Route: 048
     Dates: start: 201303
  15. CALCIUM 600 + D [Concomitant]
     Indication: PRODUCT USED FOR UNKNOWN INDICATION
     Dosage: 600MG-125UNIT
     Route: 048
  16. MAGIC MOUTHWASH WITH NYSTATIN AND LIDOCAINE [Concomitant]
     Indication: PRODUCT USED FOR UNKNOWN INDICATION
  17. MULTI-VITAMIN [Concomitant]
     Indication: PRODUCT USED FOR UNKNOWN INDICATION
     Route: 048
  18. NIACIN [Concomitant]
     Indication: PRODUCT USED FOR UNKNOWN INDICATION
  19. MIRABEGRON [Concomitant]
     Indication: PRODUCT USED FOR UNKNOWN INDICATION
     Route: 048

REACTIONS (5)
  - Hypoaesthesia [Recovered/Resolved]
  - Dysarthria [Recovered/Resolved]
  - Paraesthesia [Recovered/Resolved]
  - Aphasia [Unknown]
  - Hypoaesthesia oral [Recovered/Resolved]
